FAERS Safety Report 6790300-2 (Version None)
Quarter: 2010Q2

REPORT INFORMATION
  Report Type: 
  Country: None (occurrence: None)
  Receive Date: 20100624
  Receipt Date: 20100613
  Transmission Date: 20101027
  Serious: Yes (Other)
  Sender: FDA-Public Use
  Company Number: US-PFIZER INC-2010074414

PATIENT
  Sex: Male
  Weight: 149.66 kg

DRUGS (1)
  1. ZYVOX [Suspect]
     Indication: STAPHYLOCOCCAL INFECTION
     Dosage: 600 MG, 2X/DAY
     Route: 048
     Dates: start: 20100514, end: 20100603

REACTIONS (2)
  - DIABETES MELLITUS [None]
  - TONGUE DISCOLOURATION [None]
